FAERS Safety Report 5847069-5 (Version None)
Quarter: 2008Q3

REPORT INFORMATION
  Report Type: 
  Country: None (occurrence: None)
  Receive Date: 20080815
  Receipt Date: 20080808
  Transmission Date: 20090109
  Serious: Yes (Disabling, Other)
  Sender: FDA-Public Use
  Company Number: US-PFIZER INC-2008066405

PATIENT
  Sex: Male
  Weight: 77.1 kg

DRUGS (3)
  1. XANAX [Suspect]
     Indication: PANIC ATTACK
  2. AMLODIPINE [Concomitant]
  3. PREDNISONE TAB [Concomitant]

REACTIONS (12)
  - ABDOMINAL PAIN UPPER [None]
  - AMNESIA [None]
  - BACK DISORDER [None]
  - BRAIN SCAN ABNORMAL [None]
  - CONFUSIONAL STATE [None]
  - CONSTIPATION [None]
  - DIABETES MELLITUS [None]
  - DIARRHOEA [None]
  - ERECTILE DYSFUNCTION [None]
  - MALIGNANT MELANOMA [None]
  - WEIGHT DECREASED [None]
  - WEIGHT INCREASED [None]
